FAERS Safety Report 12746042 (Version 1)
Quarter: 2016Q3

REPORT INFORMATION
  Report Type: Spontaneous
  Country: CH (occurrence: CH)
  Receive Date: 20160915
  Receipt Date: 20160915
  Transmission Date: 20161109
  Serious: Yes (Hospitalization)
  Sender: FDA-Public Use
  Company Number: CH-PFIZER INC-2016424200

PATIENT
  Age: 75 Year
  Sex: Female

DRUGS (10)
  1. CALCIMAGON D3 [Concomitant]
     Active Substance: CALCIUM\CHOLECALCIFEROL
  2. XELJANZ [Suspect]
     Active Substance: TOFACITINIB CITRATE
     Indication: POLYARTHRITIS
     Dosage: 5 MG, 2X/DAY (1-0-1-0)
     Route: 048
     Dates: start: 20150701, end: 20160819
  3. ESOMEP /01479301/ [Concomitant]
     Active Substance: ESOMEPRAZOLE
  4. METAMUCIL [Concomitant]
     Active Substance: PLANTAGO SEED
  5. DAFALGAN [Concomitant]
     Active Substance: ACETAMINOPHEN
     Dosage: AS NEEDED
  6. KEPPRA [Concomitant]
     Active Substance: LEVETIRACETAM
     Route: 048
  7. RASILEZ [Concomitant]
     Active Substance: ALISKIREN
  8. LAXOBERON [Concomitant]
     Active Substance: SODIUM PICOSULFATE
  9. SEVIKAR HCT [Concomitant]
     Active Substance: AMLODIPINE BESYLATE\HYDROCHLOROTHIAZIDE\OLMESARTAN MEDOXOMIL
     Dosage: UNK
     Dates: end: 20160826
  10. IMOVANE [Concomitant]
     Active Substance: ZOPICLONE

REACTIONS (2)
  - Urosepsis [Recovered/Resolved]
  - Hypochromic anaemia [Not Recovered/Not Resolved]

NARRATIVE: CASE EVENT DATE: 20160819
